FAERS Safety Report 23422647 (Version 1)
Quarter: 2024Q1

REPORT INFORMATION
  Report Type: Spontaneous
  Country: US (occurrence: US)
  Receive Date: 20240119
  Receipt Date: 20240119
  Transmission Date: 20240410
  Serious: No
  Sender: FDA-Public Use
  Company Number: US-GSK-US2024005688

PATIENT
  Age: 43 Year
  Sex: Female

DRUGS (3)
  1. LAMICTAL [Suspect]
     Active Substance: LAMOTRIGINE
     Indication: Bipolar I disorder
     Dosage: 25 MG, QD
     Dates: start: 20231205, end: 20231220
  2. TRAZODONE [Concomitant]
     Active Substance: TRAZODONE HYDROCHLORIDE
     Indication: Alcohol use
     Dosage: 100 MG, QD
     Dates: start: 20231205
  3. ABILIFY [Concomitant]
     Active Substance: ARIPIPRAZOLE
     Indication: Alcohol use
     Dosage: 10 MG, QD
     Dates: start: 20221018

REACTIONS (2)
  - Panic attack [Unknown]
  - Discontinued product administered [Unknown]

NARRATIVE: CASE EVENT DATE: 20231220
